FAERS Safety Report 7112274-7 (Version None)
Quarter: 2010Q4

REPORT INFORMATION
  Report Type: 
  Country: None (occurrence: None)
  Receive Date: 20101119
  Receipt Date: 20100506
  Transmission Date: 20110411
  Serious: No
  Sender: FDA-Public Use
  Company Number: A0860447A

PATIENT
  Sex: Female

DRUGS (1)
  1. AVODART [Suspect]
     Dosage: .5MG SINGLE DOSE
     Route: 065

REACTIONS (2)
  - ACCIDENTAL EXPOSURE [None]
  - DRUG EXPOSURE VIA BREAST MILK [None]
